FAERS Safety Report 8815332 (Version 1)
Quarter: 2012Q4

REPORT INFORMATION
  Report Type: Report from Study
  Country: DE (occurrence: DE)
  Receive Date: 20120928
  Receipt Date: 20120928
  Transmission Date: 20130627
  Serious: Yes (Death, Life-Threatening, Hospitalization)
  Sender: FDA-Public Use
  Company Number: DE-TEVA-361739USA

PATIENT
  Age: 79 Year
  Sex: Male

DRUGS (6)
  1. TREANDA [Suspect]
     Indication: MULTIPLE MYELOMA
     Route: 042
     Dates: start: 20110303, end: 20110404
  2. VELCADE [Suspect]
     Indication: MULTIPLE MYELOMA
     Route: 065
     Dates: start: 20090224, end: 20090524
  3. REVLIMID [Suspect]
     Indication: MULTIPLE MYELOMA
     Dates: start: 20111014
  4. DEXAMETHASONE [Suspect]
     Indication: MULTIPLE MYELOMA
     Dates: start: 20111014
  5. IBANDRONATE SODIUM [Concomitant]
  6. FRAXIPARIN [Concomitant]
     Dates: start: 20111014

REACTIONS (1)
  - Pyrexia [Fatal]
